FAERS Safety Report 5445688-1 (Version None)
Quarter: 2007Q3

REPORT INFORMATION
  Report Type: 
  Country: None (occurrence: None)
  Receive Date: 20070904
  Receipt Date: 20070821
  Transmission Date: 20080115
  Serious: Yes (Hospitalization)
  Sender: FDA-Public Use
  Company Number: US-CVT-070128

PATIENT
  Age: 52 Year
  Sex: Male

DRUGS (17)
  1. RANEXA [Suspect]
     Dosage: 500 MG, BID; ORAL, 7 TABLETS AT ONCE, ORAL
     Route: 048
     Dates: start: 20070710, end: 20070710
  2. VICODIN [Suspect]
     Dosage: PRN, ORAL
     Route: 048
  3. METHADONE /00068907/(METHADONE) [Concomitant]
  4. INSULIN /00030501/ (INSULIN) [Concomitant]
  5. GLYBURIDE (GLBENCLAMIDE) [Concomitant]
  6. ASPIRIN [Concomitant]
  7. METOPROLOL/00376901/ (METOPROLOL) [Concomitant]
  8. AMBIEN [Concomitant]
  9. LASIX [Concomitant]
  10. LIPITOR [Concomitant]
  11. TOPROL-XL [Concomitant]
  12. ISOSORBIDE MONONITRATE [Concomitant]
  13. BENZEPRIL (BENAZEPRIL) [Concomitant]
  14. PREVACID [Concomitant]
  15. COLACE (DOCUSATE SODIUM) [Concomitant]
  16. SENNA (SENNA ALEXANDRINA) [Concomitant]
  17. ATORVASTATIN/01326101/(ATORVASTATIN) [Concomitant]

REACTIONS (13)
  - ABDOMINAL PAIN [None]
  - BLOOD PH DECREASED [None]
  - CHEST PAIN [None]
  - DIARRHOEA [None]
  - GASTROENTERITIS [None]
  - HYPOTENSION [None]
  - INTENTIONAL OVERDOSE [None]
  - LETHARGY [None]
  - MENTAL STATUS CHANGES [None]
  - PNEUMONIA ASPIRATION [None]
  - RENAL FAILURE ACUTE [None]
  - RESPIRATORY DEPRESSION [None]
  - STAPHYLOCOCCAL INFECTION [None]
